FAERS Safety Report 11693314 (Version 1)
Quarter: 2015Q4

REPORT INFORMATION
  Report Type: Spontaneous
  Country: US (occurrence: None)
  Receive Date: 20151102
  Receipt Date: 20151102
  Transmission Date: 20160304
  Serious: Yes (Disabling)
  Sender: FDA-Public Use
  Company Number: None

PATIENT
  Age: 73 Year
  Sex: Male
  Weight: 113.4 kg

DRUGS (7)
  1. TAMSULOSIN [Suspect]
     Active Substance: TAMSULOSIN
     Indication: BLADDER DISORDER
     Dosage: 1/DAY
     Route: 048
     Dates: start: 2009, end: 20151012
  2. FOLIC ACID. [Concomitant]
     Active Substance: FOLIC ACID
  3. ACIDOPHILUS [Concomitant]
     Active Substance: LACTOBACILLUS ACIDOPHILUS
  4. TAMSULOSIN [Concomitant]
     Active Substance: TAMSULOSIN
  5. REMICADE [Concomitant]
     Active Substance: INFLIXIMAB
  6. SULFASALAZINE. [Concomitant]
     Active Substance: SULFASALAZINE
  7. FE TABS EC 325 MG TAB WINDMILL C [Concomitant]
     Active Substance: DIETARY SUPPLEMENT

REACTIONS (3)
  - Product substitution issue [None]
  - Middle insomnia [None]
  - Urinary retention [None]

NARRATIVE: CASE EVENT DATE: 201510
